FAERS Safety Report 5968937-X (Version None)
Quarter: 2008Q4

REPORT INFORMATION
  Report Type: 
  Country: None (occurrence: None)
  Receive Date: 20081125
  Receipt Date: 20081125
  Transmission Date: 20090506
  Serious: Yes (Life-Threatening, Other)
  Sender: FDA-Public Use
  Company Number: None

PATIENT
  Age: 69 Year
  Sex: Male
  Weight: 99.7913 kg

DRUGS (1)
  1. FENTANYL [Suspect]
     Indication: PHANTOM PAIN
     Dosage: 1 PATCH EVERY 3 DAYS CUTANEOUS
     Route: 003
     Dates: start: 20081108, end: 20081111

REACTIONS (4)
  - APPLICATION SITE RASH [None]
  - DEVICE MALFUNCTION [None]
  - FEELING ABNORMAL [None]
  - PRODUCT QUALITY ISSUE [None]
